FAERS Safety Report 4434180-9 (Version None)
Quarter: 2004Q3

REPORT INFORMATION
  Report Type: 
  Country: None (occurrence: None)
  Receive Date: 20040726
  Receipt Date: 20040329
  Transmission Date: 20050211
  Serious: No
  Sender: FDA-Public Use
  Company Number: USA040156607

PATIENT
  Age: 64 Year
  Sex: Female

DRUGS (10)
  1. FORTEO [Suspect]
     Indication: BONE DISORDER
     Dosage: 20 UG DAY
     Dates: start: 20040113
  2. EVISTA [Suspect]
     Dates: start: 20020101, end: 20030101
  3. TRICOR [Concomitant]
  4. CORAL CALCIUM DAILY [Concomitant]
  5. CALCIUM [Concomitant]
  6. VITAMIN E [Concomitant]
  7. VITAMIN D [Concomitant]
  8. VITAMIN B COMPLEX CAP [Concomitant]
  9. VITAMIN C [Concomitant]
  10. MULTI-VITAMINS [Concomitant]

REACTIONS (13)
  - ASTHENIA [None]
  - DIZZINESS [None]
  - DRUG INEFFECTIVE [None]
  - FATIGUE [None]
  - FEELING ABNORMAL [None]
  - FEELING JITTERY [None]
  - HEART RATE INCREASED [None]
  - INSOMNIA [None]
  - MUSCULAR WEAKNESS [None]
  - MYALGIA [None]
  - PAIN [None]
  - PAIN IN EXTREMITY [None]
  - TOOTH DISORDER [None]
